FAERS Safety Report 16554851 (Version 1)
Quarter: 2019Q3

REPORT INFORMATION
  Report Type: Spontaneous
  Country: PT (occurrence: PT)
  Receive Date: 20190710
  Receipt Date: 20190710
  Transmission Date: 20191004
  Serious: Yes (Hospitalization)
  Sender: FDA-Public Use
  Company Number: PT-MYLANLABS-2019M1064173

PATIENT
  Age: 33 Year
  Sex: Male

DRUGS (5)
  1. CLEMASTINA                         /00137201/ [Concomitant]
     Indication: ANAPHYLACTIC REACTION
     Dosage: 1 MILLIGRAM, TOTAL
     Route: 042
     Dates: start: 20171104
  2. HIDROCORTISONA                     /00028601/ [Concomitant]
     Active Substance: HYDROCORTISONE
     Indication: ANAPHYLACTIC REACTION
     Dosage: 400 MILLIGRAM, TOTAL
     Route: 042
     Dates: start: 20171104
  3. EPINEPHRINE. [Suspect]
     Active Substance: EPINEPHRINE
     Indication: ANAPHYLACTIC REACTION
     Dosage: 0.5 MILLIGRAM, TOTAL
     Route: 030
     Dates: start: 20171104, end: 20171104
  4. AMOXICILINA + ACIDO CLAVULANICO [Concomitant]
     Active Substance: AMOXICILLIN\CLAVULANIC ACID
     Indication: DENTAL CARE
     Dosage: 1000 MILLIGRAM, QD
     Route: 048
     Dates: start: 20171104, end: 20171104
  5. METILPREDNISOLONA                  /00049601/ [Concomitant]
     Active Substance: METHYLPREDNISOLONE
     Indication: ANAPHYLACTIC REACTION
     Dosage: 40 MILLIGRAM, TOTAL
     Route: 042

REACTIONS (5)
  - Cyanosis [Recovered/Resolved]
  - Myoclonus [Recovered/Resolved]
  - Rhabdomyolysis [Recovered/Resolved]
  - Feeling cold [Recovered/Resolved]
  - Muscle spasms [Recovered/Resolved]

NARRATIVE: CASE EVENT DATE: 20171104
